FAERS Safety Report 20714115 (Version 1)
Quarter: 2022Q2

REPORT INFORMATION
  Report Type: Spontaneous
  Country: NO (occurrence: NO)
  Receive Date: 20220415
  Receipt Date: 20220415
  Transmission Date: 20220721
  Serious: Yes (Hospitalization, Other)
  Sender: FDA-Public Use
  Company Number: NO-PFIZER INC-202200536618

PATIENT
  Age: 56 Year
  Sex: Female

DRUGS (11)
  1. NEURONTIN [Suspect]
     Active Substance: GABAPENTIN
     Indication: Abdominal pain upper
     Dosage: UNK
     Dates: start: 20211027, end: 20211030
  2. TARGINIQ ER [Suspect]
     Active Substance: NALOXONE HYDROCHLORIDE\OXYCODONE HYDROCHLORIDE
     Indication: Abdominal pain upper
     Dosage: UNK
     Dates: start: 20211027, end: 20211030
  3. FENTANYL [Concomitant]
     Active Substance: FENTANYL
     Dosage: UNK
  4. ACETAMINOPHEN [Concomitant]
     Active Substance: ACETAMINOPHEN
     Dosage: UNK
  5. DIAZEPAM [Concomitant]
     Active Substance: DIAZEPAM
     Dosage: UNK
  6. ESOMEPRAZOLE SODIUM [Concomitant]
     Active Substance: ESOMEPRAZOLE SODIUM
     Dosage: UNK
  7. ACETYLSALISYLSYRE [Concomitant]
     Dosage: UNK
  8. NITRAZEPAM [Concomitant]
     Active Substance: NITRAZEPAM
     Dosage: UNK
  9. SODIUM BICARBONATE [Concomitant]
     Active Substance: SODIUM BICARBONATE
     Dosage: UNK
  10. CELEBRA [Concomitant]
     Active Substance: CELECOXIB
     Dosage: UNK
  11. OXYCODONE HYDROCHLORIDE [Concomitant]
     Active Substance: OXYCODONE HYDROCHLORIDE
     Dosage: UNK

REACTIONS (10)
  - Memory impairment [Recovered/Resolved]
  - Hypnagogic hallucination [Unknown]
  - Hypothermia [Unknown]
  - Personality change [Recovered/Resolved]
  - Social avoidant behaviour [Unknown]
  - Insomnia [Unknown]
  - Nightmare [Unknown]
  - Loss of personal independence in daily activities [Unknown]
  - Wrong dose [Unknown]
  - Off label use [Unknown]

NARRATIVE: CASE EVENT DATE: 20211027
